FAERS Safety Report 12468734 (Version 2)
Quarter: 2016Q2

REPORT INFORMATION
  Report Type: Spontaneous
  Country: US (occurrence: US)
  Receive Date: 20160615
  Receipt Date: 20160617
  Transmission Date: 20160815
  Serious: Yes (Other)
  Sender: FDA-Public Use
  Company Number: US-009507513-1211USA003375

PATIENT
  Age: 9 Year
  Sex: Female

DRUGS (1)
  1. SINGULAIR [Suspect]
     Active Substance: MONTELUKAST SODIUM
     Indication: ASTHMA
     Dosage: UNK
     Route: 048

REACTIONS (7)
  - Asthma [Unknown]
  - Anger [Unknown]
  - Screaming [Unknown]
  - Suicidal ideation [Unknown]
  - Mood swings [Unknown]
  - Drug ineffective [Unknown]
  - Depression [Unknown]
